FAERS Safety Report 14856946 (Version 2)
Quarter: 2019Q2

REPORT INFORMATION
  Report Type: Spontaneous
  Country: US (occurrence: US)
  Receive Date: 20180507
  Receipt Date: 20190509
  Transmission Date: 20190711
  Serious: No
  Sender: FDA-Public Use
  Company Number: US-ROCHE-2076697

PATIENT
  Sex: Male

DRUGS (16)
  1. MELOXICAM. [Concomitant]
     Active Substance: MELOXICAM
     Route: 065
  2. VALSARTAN. [Concomitant]
     Active Substance: VALSARTAN
     Dosage: 12.5M
     Route: 065
  3. VENTOLIN HFA [Concomitant]
     Active Substance: ALBUTEROL SULFATE
     Route: 065
  4. AZELASTINE HCL [Concomitant]
     Active Substance: AZELASTINE HYDROCHLORIDE
     Route: 065
  5. OMEPRAZOLE. [Concomitant]
     Active Substance: OMEPRAZOLE
     Route: 065
  6. VOLTAREN [DICLOFENAC] [Concomitant]
     Active Substance: DICLOFENAC SODIUM
     Route: 065
  7. ESBRIET [Suspect]
     Active Substance: PIRFENIDONE
     Dosage: TAKE 3 CAPSULES BY MOUTH 3X TIMES A DAY WITH MEALS
     Route: 048
  8. FLUTICASONE. [Concomitant]
     Active Substance: FLUTICASONE
     Route: 065
  9. ESBRIET [Suspect]
     Active Substance: PIRFENIDONE
     Indication: IDIOPATHIC PULMONARY FIBROSIS
     Dosage: TAKE 3 CAPSULES BY MOUTH 3X TIMES A DAY WITH MEALS
     Route: 048
     Dates: start: 201711
  10. FLOVENT HFA [Concomitant]
     Active Substance: FLUTICASONE PROPIONATE
     Route: 065
  11. FLUZONE [INFLUENZA VACCINE] [Concomitant]
     Route: 065
  12. GLIPIZIDE. [Concomitant]
     Active Substance: GLIPIZIDE
     Route: 065
  13. AMLODIPINE BESILATE [Concomitant]
     Active Substance: AMLODIPINE BESYLATE
     Route: 065
  14. ANORO ELLIPTA [Concomitant]
     Active Substance: UMECLIDINIUM BROMIDE\VILANTEROL TRIFENATATE
     Dosage: 62.5-25 M
     Route: 065
  15. ATORVASTATIN [Concomitant]
     Active Substance: ATORVASTATIN
     Route: 065
  16. VENLAFAXINE [Concomitant]
     Active Substance: VENLAFAXINE HYDROCHLORIDE
     Route: 065

REACTIONS (4)
  - Oropharyngeal pain [Not Recovered/Not Resolved]
  - Abdominal pain upper [Unknown]
  - Dyspepsia [Unknown]
  - Throat irritation [Unknown]
